FAERS Safety Report 4482586-4 (Version None)
Quarter: 2004Q4

REPORT INFORMATION
  Report Type: 
  Country: None (occurrence: None)
  Receive Date: 20041022
  Receipt Date: 20040213
  Transmission Date: 20050328
  Serious: Yes (Other)
  Sender: FDA-Public Use
  Company Number: BE-JNJFOC-20040203179

PATIENT
  Sex: Male
  Weight: 9.38 kg

DRUGS (1)
  1. CISAPRIDE [Suspect]
     Indication: GASTROOESOPHAGEAL REFLUX DISEASE
     Route: 065

REACTIONS (8)
  - ATRIAL THROMBOSIS [None]
  - ATRIOVENTRICULAR CANAL [None]
  - CARDIAC FAILURE [None]
  - HEPATITIS [None]
  - POSTOPERATIVE INFECTION [None]
  - THROMBOSIS [None]
  - WEIGHT GAIN POOR [None]
  - WOUND INFECTION [None]
